FAERS Safety Report 13564747 (Version 8)
Quarter: 2017Q3

REPORT INFORMATION
  Report Type: Report from Study
  Country: HU (occurrence: HU)
  Receive Date: 20170519
  Receipt Date: 20170804
  Transmission Date: 20171127
  Serious: Yes (Other)
  Sender: FDA-Public Use
  Company Number: HU-SA-2017SA089747

PATIENT
  Age: 67 Year
  Sex: Male
  Weight: 84 kg

DRUGS (13)
  1. FORMOTEROL [Concomitant]
     Active Substance: FORMOTEROL
     Dosage: 2X2 EXP
     Route: 065
     Dates: start: 2000
  2. MOMETASONE [Concomitant]
     Active Substance: MOMETASONE
     Dosage: 2X2 EXP
     Route: 065
     Dates: start: 20060111
  3. SILYMARIN [Concomitant]
     Active Substance: MILK THISTLE
     Dosage: 1X1
     Route: 065
     Dates: start: 20150707
  4. ACETYLSALICYLIC ACID [Concomitant]
     Active Substance: ASPIRIN
     Route: 065
     Dates: start: 20150710
  5. DESLORATADINE. [Concomitant]
     Active Substance: DESLORATADINE
     Dosage: 1X1
     Route: 065
     Dates: start: 2000
  6. PANTOPRAZOL [Concomitant]
     Active Substance: PANTOPRAZOLE SODIUM
     Dosage: 1X40 MG
     Route: 065
     Dates: start: 20150714
  7. RAMIPRIL. [Concomitant]
     Active Substance: RAMIPRIL
     Dosage: 1X1.25 MG
     Route: 065
     Dates: start: 20150714
  8. FUROSEMID [Concomitant]
     Active Substance: FUROSEMIDE
     Route: 065
     Dates: start: 20150714
  9. POTASSIUM [Concomitant]
     Active Substance: POTASSIUM
     Route: 065
     Dates: start: 20150714
  10. BISOPROLOL [Concomitant]
     Active Substance: BISOPROLOL
     Dosage: 2X5 MG
     Route: 065
     Dates: start: 20160125
  11. SAR236553 [Suspect]
     Active Substance: ALIROCUMAB
     Indication: HYPERCHOLESTEROLAEMIA
     Route: 058
     Dates: start: 20150918, end: 20170120
  12. ROSUVASTATIN. [Suspect]
     Active Substance: ROSUVASTATIN
     Indication: HYPERCHOLESTEROLAEMIA
     Route: 048
     Dates: start: 20150713
  13. SPIRONOLACTONE. [Concomitant]
     Active Substance: SPIRONOLACTONE
     Dosage: 1X1
     Route: 065
     Dates: start: 20150714

REACTIONS (1)
  - Eczema nummular [Recovered/Resolved]

NARRATIVE: CASE EVENT DATE: 20161223
